FAERS Safety Report 24122398 (Version 4)
Quarter: 2024Q4

REPORT INFORMATION
  Report Type: Report from Study
  Country: US (occurrence: US)
  Receive Date: 20240723
  Receipt Date: 20241122
  Transmission Date: 20250115
  Serious: Yes (Hospitalization, Other)
  Sender: ABBVIE
  Company Number: US-ABBVIE-5845898

PATIENT
  Age: 78 Year
  Sex: Male

DRUGS (2)
  1. IMBRUVICA [Suspect]
     Active Substance: IBRUTINIB
     Indication: B-cell small lymphocytic lymphoma
     Dosage: LAST ADMIN DATE 2024
     Route: 048
     Dates: start: 202401
  2. IMBRUVICA [Suspect]
     Active Substance: IBRUTINIB
     Indication: B-cell small lymphocytic lymphoma
     Route: 048
     Dates: start: 20240217

REACTIONS (6)
  - Lymphoma [Unknown]
  - Scan abnormal [Unknown]
  - Brain fog [Unknown]
  - Diarrhoea [Unknown]
  - Memory impairment [Unknown]
  - Asthenia [Unknown]

NARRATIVE: CASE EVENT DATE: 20240101
